FAERS Safety Report 10264159 (Version 1)
Quarter: 2014Q2

REPORT INFORMATION
  Report Type: Spontaneous
  Country: IT (occurrence: None)
  Receive Date: 20140624
  Receipt Date: 20140624
  Transmission Date: 20141212
  Serious: Yes (Hospitalization)
  Sender: FDA-Public Use
  Company Number: AUR-APL-2014-06656

PATIENT
  Age: 59 Year
  Sex: Female

DRUGS (5)
  1. METFORMIN [Suspect]
     Indication: DIABETES MELLITUS
  2. LANSOPRAZOLE (LANSOPRAZOLE) [Suspect]
     Indication: PRODUCT USED FOR UNKNOWN INDICATION
     Route: 048
     Dates: start: 20140519, end: 20140607
  3. DOBETIN [Suspect]
     Indication: PRODUCT USED FOR UNKNOWN INDICATION
     Route: 048
     Dates: start: 20140602, end: 20140607
  4. TAVOR (LORAZEPAM) [Concomitant]
  5. SOLDESAM (DEXAMETHASONE SODIUM PHOSPHATE) [Concomitant]

REACTIONS (2)
  - Rash [None]
  - Urticaria [None]
